FAERS Safety Report 23848438 (Version 3)
Quarter: 2024Q3

REPORT INFORMATION
  Report Type: Spontaneous
  Country: US (occurrence: US)
  Receive Date: 20240513
  Receipt Date: 20240711
  Transmission Date: 20241016
  Serious: No
  Sender: PFIZER
  Company Number: US-PFIZER INC-202400105124

PATIENT
  Age: 63 Year
  Sex: Female

DRUGS (5)
  1. INLYTA [Suspect]
     Active Substance: AXITINIB
     Dosage: EVERY 12 HOURS
     Route: 048
     Dates: start: 20240424
  2. DESOXIMETASONE [Concomitant]
     Active Substance: DESOXIMETASONE
     Dosage: UNK
  3. IBU [Concomitant]
     Active Substance: IBUPROFEN
     Dosage: UNK
  4. KEYTRUDA [Concomitant]
     Active Substance: PEMBROLIZUMAB
     Dosage: UNK
  5. LUNESTA [Concomitant]
     Active Substance: ESZOPICLONE
     Dosage: UNK

REACTIONS (13)
  - Blood pressure increased [Not Recovered/Not Resolved]
  - Fatigue [Recovering/Resolving]
  - Dysphonia [Recovering/Resolving]
  - Herpes zoster [Not Recovered/Not Resolved]
  - Abdominal pain upper [Unknown]
  - Ageusia [Unknown]
  - Dry mouth [Unknown]
  - Dizziness [Unknown]
  - Skin texture abnormal [Unknown]
  - Rash pruritic [Unknown]
  - Constipation [Unknown]
  - Dyspepsia [Unknown]
  - Weight decreased [Unknown]
